FAERS Safety Report 5820438-5 (Version None)
Quarter: 2008Q3

REPORT INFORMATION
  Report Type: 
  Country: None (occurrence: None)
  Receive Date: 20080724
  Receipt Date: 20070727
  Transmission Date: 20090109
  Serious: No
  Sender: FDA-Public Use
  Company Number: A0666778A

PATIENT
  Age: 57 Year
  Sex: Male

DRUGS (3)
  1. AVANDIA [Suspect]
     Dosage: 4MG PER DAY
     Route: 048
     Dates: start: 20070721
  2. BLOOD PRESSURE MEDICATION [Concomitant]
  3. CINNAMON [Concomitant]

REACTIONS (1)
  - DRUG INEFFECTIVE [None]
